FAERS Safety Report 22107328 (Version 2)
Quarter: 2023Q2

REPORT INFORMATION
  Report Type: Spontaneous
  Country: CN (occurrence: CN)
  Receive Date: 20230317
  Receipt Date: 20230417
  Transmission Date: 20230722
  Serious: Yes (Hospitalization, Other)
  Sender: FDA-Public Use
  Company Number: CN-AMGEN-CHNSP2023043639

PATIENT
  Age: 26 Year
  Sex: Female

DRUGS (2)
  1. CINACALCET HYDROCHLORIDE [Suspect]
     Active Substance: CINACALCET HYDROCHLORIDE
     Indication: Hyperthyroidism
     Dosage: 30 MILLIGRAM/12 HOURS
     Route: 048
  2. ZOLEDRONIC ACID [Concomitant]
     Active Substance: ZOLEDRONIC ACID
     Indication: Hyperthyroidism
     Dosage: 4 MILLIGRAM, QD
     Route: 042

REACTIONS (4)
  - Pancreatitis acute [Recovering/Resolving]
  - Mental disorder [Recovering/Resolving]
  - Confusional state [Recovering/Resolving]
  - Hypercalcaemia [Unknown]
